FAERS Safety Report 16607650 (Version 1)
Quarter: 2019Q3

REPORT INFORMATION
  Report Type: Spontaneous
  Country: US (occurrence: US)
  Receive Date: 20190606
  Receipt Date: 20190606
  Transmission Date: 20191004
  Serious: Yes (Hospitalization)
  Sender: FDA-Public Use
  Company Number: None

PATIENT
  Age: 70 Year
  Sex: Male
  Weight: 81.5 kg

DRUGS (5)
  1. LEUCOVORIN. [Concomitant]
     Active Substance: LEUCOVORIN
  2. FOLINIC ACID [Suspect]
     Active Substance: LEUCOVORIN
  3. FLUOROURACIL. [Suspect]
     Active Substance: FLUOROURACIL
  4. ABRAXANE [Concomitant]
     Active Substance: PACLITAXEL
  5. OXALIPLATIN. [Suspect]
     Active Substance: OXALIPLATIN

REACTIONS (7)
  - Culture positive [None]
  - Laboratory test interference [None]
  - Pyrexia [None]
  - Intra-abdominal fluid collection [None]
  - Benign neoplasm [None]
  - Staphylococcal infection [None]
  - Pulmonary embolism [None]

NARRATIVE: CASE EVENT DATE: 20190529
